FAERS Safety Report 19487226 (Version 1)
Quarter: 2021Q3

REPORT INFORMATION
  Report Type: Spontaneous
  Country: US (occurrence: US)
  Receive Date: 20210702
  Receipt Date: 20210702
  Transmission Date: 20211014
  Serious: No
  Sender: FDA-Public Use
  Company Number: US-HORIZON-2021HZN00381

PATIENT

DRUGS (1)
  1. VIMOVO [Suspect]
     Active Substance: ESOMEPRAZOLE MAGNESIUM\NAPROXEN
     Indication: HEADACHE
     Dosage: UNK

REACTIONS (2)
  - Drug effect less than expected [Unknown]
  - Off label use [Unknown]
